FAERS Safety Report 9456888 (Version 1)
Quarter: 2013Q3

REPORT INFORMATION
  Report Type: Spontaneous
  Country: US (occurrence: None)
  Receive Date: 20130809
  Receipt Date: 20130809
  Transmission Date: 20140515
  Serious: Yes (Other)
  Sender: FDA-Public Use
  Company Number: CIO13044294

PATIENT
  Age: 3 Year
  Sex: Female
  Weight: 11.3 kg

DRUGS (1)
  1. ZZZQUIL NIHTTIME SLEEP-AID [Suspect]
     Dosage: MAYBE A WHOLE BOTTLE , 1 ONLY ORAL
     Route: 048

REACTIONS (3)
  - Failure of child resistant mechanism for pharmaceutical product [None]
  - Accidental exposure to product by child [None]
  - Psychomotor hyperactivity [None]
